FAERS Safety Report 7433735-7 (Version None)
Quarter: 2011Q2

REPORT INFORMATION
  Report Type: 
  Country: None (occurrence: None)
  Receive Date: 20110424
  Receipt Date: 20110411
  Transmission Date: 20111010
  Serious: Yes (Hospitalization)
  Sender: FDA-Public Use
  Company Number: CA-ELI_LILLY_AND_COMPANY-CA201104002826

PATIENT
  Sex: Female
  Weight: 87.6 kg

DRUGS (22)
  1. SEROQUEL [Concomitant]
  2. PAXIL [Concomitant]
  3. ZYPREXA [Suspect]
     Dosage: 7.5 MG, QD
     Route: 048
  4. BUSPIRONE HCL [Concomitant]
  5. ZYPREXA [Suspect]
     Dosage: 12.5 MG, QD
     Route: 048
  6. ZYPREXA [Suspect]
     Dosage: 17.5 MG, QD
     Route: 048
  7. LITHIUM [Concomitant]
  8. PERPHENAZINE [Concomitant]
  9. WELLBUTRIN [Concomitant]
  10. ZYPREXA [Suspect]
     Dosage: 10 MG, QD
     Route: 048
  11. ZYPREXA [Suspect]
     Dosage: 22.5 MG, QD
     Route: 048
  12. LEVOTHYROXINE SODIUM [Concomitant]
  13. HALDOL [Concomitant]
  14. CLONAZEPAM [Concomitant]
  15. ZYPREXA [Suspect]
     Indication: BIPOLAR DISORDER
     Dosage: 5 MG,
     Route: 048
     Dates: start: 19991208
  16. ZYPREXA [Suspect]
     Dosage: 20 MG, QD
     Route: 048
  17. CYCLOBENZAPRINE [Concomitant]
  18. ZYPREXA [Suspect]
     Dosage: 15 MG, QD
     Route: 048
  19. ZYPREXA [Suspect]
     Dosage: 22.5 MG, QD
     Route: 048
  20. EPIVAL [Concomitant]
  21. NEFAZODONE [Concomitant]
  22. CELEXA [Concomitant]

REACTIONS (6)
  - DIABETES MELLITUS [None]
  - NEPHROLITHIASIS [None]
  - OVERDOSE [None]
  - WEIGHT INCREASED [None]
  - SCIATICA [None]
  - INTERVERTEBRAL DISC PROTRUSION [None]
